FAERS Safety Report 6915812-X (Version None)
Quarter: 2010Q3

REPORT INFORMATION
  Report Type: 
  Country: None (occurrence: None)
  Receive Date: 20100810
  Receipt Date: 20100419
  Transmission Date: 20110219
  Serious: No
  Sender: FDA-Public Use
  Company Number: A0856381A

PATIENT
  Age: 56 Year
  Sex: Female

DRUGS (6)
  1. PAXIL [Suspect]
     Dosage: 75MG PER DAY
     Route: 048
     Dates: start: 20100301
  2. LIPITOR [Suspect]
     Indication: PRODUCT USED FOR UNKNOWN INDICATION
     Dosage: 40MG PER DAY
     Route: 048
     Dates: start: 20100301
  3. METOPROLOL [Concomitant]
     Dosage: 25MG TWICE PER DAY
  4. LISINOPRIL [Concomitant]
     Dosage: 20MG PER DAY
  5. XANAX [Concomitant]
     Indication: SLEEP DISORDER
     Dosage: 2MG AT NIGHT
  6. ASPIRIN [Concomitant]
     Indication: ANTICOAGULANT THERAPY
     Dosage: 81MG PER DAY

REACTIONS (1)
  - MUSCLE SPASMS [None]
